FAERS Safety Report 4461374-9 (Version None)
Quarter: 2004Q3

REPORT INFORMATION
  Report Type: 
  Country: None (occurrence: None)
  Receive Date: 20040928
  Receipt Date: 20020807
  Transmission Date: 20050211
  Serious: Yes (Hospitalization)
  Sender: FDA-Public Use
  Company Number: PHHO2002AU06030

PATIENT
  Age: 61 Year
  Sex: Male

DRUGS (1)
  1. TEGASEROD VS PLACEBO [Suspect]
     Indication: CONSTIPATION
     Dosage: 2 MG, BID
     Route: 048
     Dates: start: 20020416, end: 20020806

REACTIONS (8)
  - ABDOMINAL DISTENSION [None]
  - ABDOMINAL PAIN [None]
  - ADHESION [None]
  - COLON ADENOMA [None]
  - COLONIC POLYP [None]
  - DISEASE PROGRESSION [None]
  - FAECALOMA [None]
  - IRRITABLE BOWEL SYNDROME [None]
